FAERS Safety Report 23456843 (Version 2)
Quarter: 2024Q1

REPORT INFORMATION
  Report Type: Spontaneous
  Country: US (occurrence: US)
  Receive Date: 20240130
  Receipt Date: 20240228
  Transmission Date: 20240410
  Serious: No
  Sender: FDA-Public Use
  Company Number: US-SA-SAC20240119001525

PATIENT
  Age: 13 Year
  Sex: Female

DRUGS (2)
  1. DUPIXENT [Suspect]
     Active Substance: DUPILUMAB
     Indication: Asthma
     Dosage: 400 MG, 1X
     Route: 058
     Dates: start: 202312, end: 202312
  2. DUPIXENT [Suspect]
     Active Substance: DUPILUMAB
     Indication: Eczema
     Dosage: 200 MG, QOW
     Route: 058

REACTIONS (11)
  - Pain [Unknown]
  - Thirst [Unknown]
  - Fatigue [Unknown]
  - Skin discolouration [Unknown]
  - Eye discharge [Unknown]
  - Initial insomnia [Unknown]
  - Urticaria [Unknown]
  - Erythema [Unknown]
  - Ocular hyperaemia [Unknown]
  - Oropharyngeal pain [Unknown]
  - Eye pruritus [Unknown]

NARRATIVE: CASE EVENT DATE: 20231201
